FAERS Safety Report 15082922 (Version 2)
Quarter: 2019Q2

REPORT INFORMATION
  Report Type: Spontaneous
  Country: IN (occurrence: IN)
  Receive Date: 20180628
  Receipt Date: 20190423
  Transmission Date: 20190711
  Serious: Yes (Hospitalization, Other)
  Sender: FDA-Public Use
  Company Number: PHHY2018IN028388

PATIENT
  Age: 32 Year
  Sex: Female

DRUGS (1)
  1. CARBAMAZEPINE. [Suspect]
     Active Substance: CARBAMAZEPINE
     Indication: SEIZURE
     Dosage: 200 MG, BID
     Route: 065

REACTIONS (4)
  - Aplasia pure red cell [Recovering/Resolving]
  - Fatigue [Recovering/Resolving]
  - Bone marrow failure [Recovering/Resolving]
  - Pallor [Recovering/Resolving]
